FAERS Safety Report 4854252-4 (Version None)
Quarter: 2005Q4

REPORT INFORMATION
  Report Type: 
  Country: None (occurrence: None)
  Receive Date: 20051213
  Receipt Date: 20051205
  Transmission Date: 20060501
  Serious: Yes (Other)
  Sender: FDA-Public Use
  Company Number: 163-20785-05110203

PATIENT
  Age: 79 Year
  Sex: Male

DRUGS (6)
  1. THALOMID [Suspect]
     Indication: MULTIPLE MYELOMA
     Dosage: 200 MG, DAILY, ORAL
     Route: 048
     Dates: start: 20051027, end: 20051109
  2. ALBUTEROL [Concomitant]
  3. FLOVENT [Concomitant]
  4. SPIRIVA [Concomitant]
  5. DECARDON (DEXAMETHASONE) [Concomitant]
  6. VICODIN [Concomitant]

REACTIONS (1)
  - HALLUCINATION [None]
